FAERS Safety Report 9711019 (Version 2)
Quarter: 2013Q4

REPORT INFORMATION
  Report Type: Spontaneous
  Country: US (occurrence: US)
  Receive Date: 20131126
  Receipt Date: 20131126
  Transmission Date: 20140711
  Serious: No
  Sender: FDA-Public Use
  Company Number: US-BRISTOL-MYERS SQUIBB COMPANY-19030535

PATIENT
  Age: 58 Year
  Sex: Male

DRUGS (3)
  1. BYDUREON [Suspect]
     Indication: TYPE 2 DIABETES MELLITUS
     Route: 058
     Dates: start: 2013
  2. METFORMIN HCL [Suspect]
     Dates: end: 201306
  3. GLYBURIDE [Suspect]

REACTIONS (6)
  - Injection site extravasation [Recovered/Resolved]
  - Injection site nodule [Recovered/Resolved]
  - Blood glucose increased [Recovered/Resolved]
  - Hyperkalaemia [Recovered/Resolved]
  - Underdose [Unknown]
  - Wrong technique in drug usage process [Unknown]
